FAERS Safety Report 9032183 (Version 2)
Quarter: 2013Q1

REPORT INFORMATION
  Report Type: Spontaneous
  Country: IT (occurrence: IT)
  Receive Date: 20130122
  Receipt Date: 20130125
  Transmission Date: 20140127
  Serious: Yes (Hospitalization)
  Sender: FDA-Public Use
  Company Number: IT-PFIZER INC-2013024229

PATIENT
  Age: 63 Year
  Sex: Female

DRUGS (3)
  1. CORDARONE [Suspect]
     Indication: ATRIAL FIBRILLATION
     Dosage: 400 MG, 1X/DAY
     Route: 048
     Dates: start: 20121105, end: 20121125
  2. PNEUMOVAX [Concomitant]
     Dosage: 25 MCG, UNK
     Route: 030
     Dates: start: 20121122, end: 20121122
  3. INTANZA [Concomitant]
     Dosage: UNK
     Dates: start: 20121122, end: 20121122

REACTIONS (5)
  - Pneumonia [Recovered/Resolved]
  - Pyrexia [Recovered/Resolved]
  - Asthenia [Recovered/Resolved]
  - Arthralgia [Recovered/Resolved]
  - Rash [Recovered/Resolved]
